FAERS Safety Report 9559126 (Version 2)
Quarter: 2013Q4

REPORT INFORMATION
  Report Type: Spontaneous
  Country: US (occurrence: US)
  Receive Date: 20130927
  Receipt Date: 20131022
  Transmission Date: 20140711
  Serious: Yes (Hospitalization)
  Sender: FDA-Public Use
  Company Number: US-JNJFOC-20130915481

PATIENT
  Age: 35 Year
  Sex: Male
  Weight: 84.81 kg

DRUGS (12)
  1. NICOTROL INHALER [Suspect]
     Indication: SMOKING CESSATION THERAPY
     Route: 055
     Dates: start: 20130619, end: 20130731
  2. CHANTIX [Suspect]
     Indication: SMOKING CESSATION THERAPY
     Route: 048
     Dates: start: 20130619, end: 20130731
  3. CETIRIZINE [Concomitant]
     Indication: PRODUCT USED FOR UNKNOWN INDICATION
     Route: 048
     Dates: start: 20130612
  4. CHANTIX [Concomitant]
     Indication: SMOKING CESSATION THERAPY
     Route: 048
     Dates: start: 20130619, end: 20130731
  5. CYMBALTA [Concomitant]
     Indication: PRODUCT USED FOR UNKNOWN INDICATION
     Route: 048
  6. CLONAZEPAM [Concomitant]
     Indication: PRODUCT USED FOR UNKNOWN INDICATION
     Route: 048
  7. VENTOLIN [Concomitant]
     Indication: PRODUCT USED FOR UNKNOWN INDICATION
     Route: 055
     Dates: start: 20130403
  8. PREDNISONE [Concomitant]
     Indication: PRODUCT USED FOR UNKNOWN INDICATION
     Route: 048
     Dates: start: 20130612
  9. PREDNISONE [Concomitant]
     Indication: PRODUCT USED FOR UNKNOWN INDICATION
     Route: 048
     Dates: start: 20130401, end: 2013
  10. DOXYCYCLINE [Concomitant]
     Indication: ROSACEA
     Route: 048
  11. METRONIDAZOLE [Concomitant]
     Indication: ROSACEA
     Route: 061
  12. LOCOID [Concomitant]
     Indication: ROSACEA
     Route: 061

REACTIONS (1)
  - Oesophageal spasm [Recovering/Resolving]
